FAERS Safety Report 7350439-X (Version None)
Quarter: 2011Q1

REPORT INFORMATION
  Report Type: 
  Country: None (occurrence: None)
  Receive Date: 20110314
  Receipt Date: 20110309
  Transmission Date: 20110831
  Serious: Yes (Hospitalization, Other)
  Sender: FDA-Public Use
  Company Number: US-PFIZER INC-2005092310

PATIENT
  Sex: Male

DRUGS (6)
  1. LEXAPRO [Concomitant]
     Dosage: UNK
     Dates: start: 20000101, end: 20040101
  2. NEURONTIN [Suspect]
     Indication: BACK PAIN
     Dosage: UNK
     Dates: start: 20000721, end: 20040831
  3. ALBUTEROL [Concomitant]
     Dosage: UNK
     Dates: start: 19960101
  4. NEURONTIN [Suspect]
     Indication: PAIN
  5. HYDROCODONE [Concomitant]
     Indication: ARTHRITIS
     Dosage: UNK
     Dates: start: 20000801, end: 20040101
  6. PAXIL [Concomitant]
     Dosage: UNK
     Dates: start: 20000101

REACTIONS (7)
  - HALLUCINATION, AUDITORY [None]
  - DEPRESSION [None]
  - SUICIDE ATTEMPT [None]
  - INJURY [None]
  - HALLUCINATION, VISUAL [None]
  - DRUG INEFFECTIVE [None]
  - SUICIDAL IDEATION [None]
